FAERS Safety Report 5421754-1 (Version None)
Quarter: 2007Q3

REPORT INFORMATION
  Report Type: 
  Country: None (occurrence: None)
  Receive Date: 20070820
  Receipt Date: 20070806
  Transmission Date: 20080115
  Serious: Yes (Hospitalization)
  Sender: FDA-Public Use
  Company Number: 2007BI015749

PATIENT
  Age: 62 Year
  Sex: Female
  Weight: 73.4827 kg

DRUGS (1)
  1. NATALIZUMAB [Suspect]
     Indication: MULTIPLE SCLEROSIS
     Dosage: 300 MG QM IV
     Route: 042
     Dates: start: 20070108, end: 20070501

REACTIONS (10)
  - ASTHENIA [None]
  - BLOOD URINE PRESENT [None]
  - COMMUNICATION DISORDER [None]
  - HEART RATE INCREASED [None]
  - INCONTINENCE [None]
  - INFECTION [None]
  - LUNG DISORDER [None]
  - NEPHROLITHIASIS [None]
  - SEPSIS [None]
  - URINARY TRACT INFECTION [None]
